FAERS Safety Report 6489659-5 (Version None)
Quarter: 2009Q4

REPORT INFORMATION
  Report Type: 
  Country: None (occurrence: None)
  Receive Date: 20091207
  Receipt Date: 20091201
  Transmission Date: 20100525
  Serious: Yes (Other)
  Sender: FDA-Public Use
  Company Number: TPA2009A03445

PATIENT
  Age: 52 Year
  Sex: Female
  Weight: 56.6996 kg

DRUGS (9)
  1. KAPIDEX [Suspect]
     Indication: GASTROOESOPHAGEAL REFLUX DISEASE
     Dosage: 60 MG, ONCE IN THE AM, PER ORAL
     Route: 048
     Dates: start: 20090918, end: 20091001
  2. KAPIDEX [Suspect]
     Indication: SENSATION OF FOREIGN BODY
     Dosage: 60 MG, ONCE IN THE AM, PER ORAL
     Route: 048
     Dates: start: 20090918, end: 20091001
  3. PRILOSEC [Concomitant]
  4. PROTONIX [Concomitant]
  5. PROMETRIUM [Concomitant]
  6. AMBIEN [Concomitant]
  7. LORAZEPAM [Concomitant]
  8. SOMA [Concomitant]
  9. COREG [Concomitant]

REACTIONS (3)
  - CONDITION AGGRAVATED [None]
  - DEPRESSION [None]
  - SUICIDAL IDEATION [None]
